FAERS Safety Report 11288977 (Version 1)
Quarter: 2015Q3

REPORT INFORMATION
  Report Type: Spontaneous
  Country: US (occurrence: US)
  Receive Date: 20150721
  Receipt Date: 20150721
  Transmission Date: 20151125
  Serious: No
  Sender: FDA-Public Use
  Company Number: US-UNITED THERAPEUTICS-UNT-2014-012680

PATIENT
  Sex: Female
  Weight: 69.84 kg

DRUGS (2)
  1. ASPIRIN                            /00002701/ [Concomitant]
     Active Substance: ASPIRIN
     Indication: PRODUCT USED FOR UNKNOWN INDICATION
  2. REMODULIN [Suspect]
     Active Substance: TREPROSTINIL
     Indication: PULMONARY ARTERIAL HYPERTENSION
     Dosage: 0.076 ?G/KG/MIN, CONTINUING
     Route: 041
     Dates: start: 20131028

REACTIONS (4)
  - Arthralgia [Unknown]
  - Injection site erythema [Unknown]
  - Dyspnoea exertional [Not Recovered/Not Resolved]
  - Injection site pain [Unknown]
